FAERS Safety Report 8184381-1 (Version None)
Quarter: 2012Q1

REPORT INFORMATION
  Report Type: 
  Country: None (occurrence: None)
  Receive Date: 20120305
  Receipt Date: 20120228
  Transmission Date: 20120608
  Serious: Yes (Hospitalization)
  Sender: FDA-Public Use
  Company Number: FR-BAXTER-2012BH005777

PATIENT
  Age: 64 Year
  Sex: Male

DRUGS (5)
  1. MESNA [Concomitant]
     Indication: PRODUCT USED FOR UNKNOWN INDICATION
     Route: 042
     Dates: start: 20111208
  2. MABTHERA [Suspect]
     Indication: ANTISYNTHETASE SYNDROME
     Route: 042
     Dates: start: 20111209, end: 20111209
  3. CYCLOPHOSPHAMIDE [Suspect]
     Indication: ANTISYNTHETASE SYNDROME
     Route: 042
     Dates: start: 20100501, end: 20111208
  4. MABTHERA [Suspect]
     Route: 042
     Dates: start: 20111227, end: 20111227
  5. PREDNISONE TAB [Concomitant]
     Indication: PRODUCT USED FOR UNKNOWN INDICATION
     Route: 065
     Dates: start: 20111201

REACTIONS (1)
  - MENINGITIS ASEPTIC [None]
